FAERS Safety Report 8218905-2 (Version None)
Quarter: 2012Q1

REPORT INFORMATION
  Report Type: 
  Country: None (occurrence: None)
  Receive Date: 20120319
  Receipt Date: 20120315
  Transmission Date: 20120608
  Serious: Yes (Death)
  Sender: FDA-Public Use
  Company Number: PHHY2012HN023150

PATIENT
  Age: 86 Year
  Sex: Female

DRUGS (4)
  1. METFORMIN HYDROCHLORIDE [Concomitant]
     Dosage: 850 MG, PER DAY
     Route: 048
  2. LASIX [Concomitant]
     Dosage: 40 MG, PRN
     Route: 048
  3. EXFORGE [Suspect]
     Indication: MYOCARDIAL INFARCTION
     Dosage: 1 DF (160MG VALS/5MG AMLO) DAILY
     Route: 048
     Dates: start: 20060101
  4. NPH INSULIN [Concomitant]
     Dosage: 25 U, SC IN THE MORNING AND 15 U, SC IN THE EVENING

REACTIONS (1)
  - MYOCARDIAL INFARCTION [None]
